FAERS Safety Report 12862904 (Version 2)
Quarter: 2016Q4

REPORT INFORMATION
  Report Type: Report from Study
  Country: CA (occurrence: CA)
  Receive Date: 20161019
  Receipt Date: 20161129
  Transmission Date: 20170207
  Serious: Yes (Hospitalization, Other)
  Sender: FDA-Public Use
  Company Number: CA-ALEXION PHARMACEUTICALS INC.-A201607693

PATIENT
  Age: 70 Year
  Sex: Female
  Weight: 67.7 kg

DRUGS (36)
  1. SOLIRIS [Suspect]
     Active Substance: ECULIZUMAB
     Dosage: 1200 MG, Q2W
     Route: 042
     Dates: start: 20141121
  2. CYCLOPHOSPHAMIDE. [Concomitant]
     Active Substance: CYCLOPHOSPHAMIDE
     Indication: CHEMOTHERAPY
     Dosage: 25 MG, 2 CO. DIE
     Route: 048
     Dates: start: 20141027
  3. DILAUDID [Concomitant]
     Active Substance: HYDROMORPHONE HYDROCHLORIDE
     Dosage: UNK
     Route: 065
  4. PENICILLIN-V                       /00001801/ [Concomitant]
     Indication: PROPHYLAXIS
     Dosage: 600 MG, BID
     Route: 048
  5. CATAPRES                           /00171101/ [Concomitant]
     Active Substance: CLONIDINE
     Indication: HYPERTENSION
     Dosage: 0.05 MG, UNK
     Route: 048
  6. MAXERAN [Concomitant]
     Active Substance: METOCLOPRAMIDE HYDROCHLORIDE
     Indication: GASTROINTESTINAL DISORDER
     Dosage: 10 MG, BID, PRN
     Route: 048
     Dates: start: 20141019
  7. LIPITOR [Concomitant]
     Active Substance: ATORVASTATIN CALCIUM
     Dosage: 40 MG, QD
     Route: 048
  8. DILAUDID [Concomitant]
     Active Substance: HYDROMORPHONE HYDROCHLORIDE
     Indication: ANALGESIC THERAPY
     Dosage: 1 MG, Q4H, PRN
     Route: 058
     Dates: start: 20141125
  9. PREDNISONE. [Concomitant]
     Active Substance: PREDNISONE
     Indication: STEROID THERAPY
     Dosage: 60 MG, DIE
     Route: 048
     Dates: start: 20141016
  10. PREDNISONE. [Concomitant]
     Active Substance: PREDNISONE
     Dosage: 20 MG, QD
     Route: 048
  11. CARDURA [Concomitant]
     Active Substance: DOXAZOSIN MESYLATE
     Indication: HYPERTENSION
     Dosage: 1 MG, QD
     Route: 048
  12. MAGNESIUM [Concomitant]
     Active Substance: MAGNESIUM
     Indication: VITAMIN SUPPLEMENTATION
     Dosage: 250 MG, BID
     Route: 048
  13. ARANESP [Concomitant]
     Active Substance: DARBEPOETIN ALFA
     Indication: PRODUCT USED FOR UNKNOWN INDICATION
     Dosage: 30 ?G, QW
     Route: 058
     Dates: start: 20141021
  14. METOPROLOL. [Concomitant]
     Active Substance: METOPROLOL
     Indication: PRODUCT USED FOR UNKNOWN INDICATION
     Dosage: 50 MG, BID
     Route: 048
     Dates: start: 20141026
  15. CREON [Concomitant]
     Active Substance: PANCRELIPASE AMYLASE\PANCRELIPASE LIPASE\PANCRELIPASE PROTEASE
     Indication: DYSPEPSIA
     Dosage: 25000-50000, TID
     Route: 065
  16. PREDNISONE. [Concomitant]
     Active Substance: PREDNISONE
     Dosage: 20 MG, QD
     Route: 048
     Dates: start: 20151207
  17. PREDNISONE. [Concomitant]
     Active Substance: PREDNISONE
     Dosage: 12.5 MG, UNK
     Route: 048
  18. PREDNISONE. [Concomitant]
     Active Substance: PREDNISONE
     Dosage: 7.5 MG, QD
     Route: 048
     Dates: start: 20160419
  19. DIOVAN [Concomitant]
     Active Substance: VALSARTAN
     Indication: HYPERTENSION
     Dosage: 160 MG, BID
     Route: 048
  20. LIPITOR [Concomitant]
     Active Substance: ATORVASTATIN CALCIUM
     Indication: PRODUCT USED FOR UNKNOWN INDICATION
     Dosage: 80 MG, QHS
     Route: 048
     Dates: start: 20141026
  21. APO-LORAZEPAM [Concomitant]
     Active Substance: LORAZEPAM
     Indication: INSOMNIA
     Dosage: 1 MG, PRN
     Route: 048
     Dates: start: 201609
  22. D-TABS [Concomitant]
     Active Substance: CHOLECALCIFEROL
     Indication: PRODUCT USED FOR UNKNOWN INDICATION
     Dosage: 10000 IU, QW (ON FRIDAY)
     Route: 048
     Dates: start: 20141012
  23. ALENDRONATE [Concomitant]
     Active Substance: ALENDRONATE SODIUM
     Indication: OSTEOPOROSIS
     Dosage: 70 MG, QW ON TUES
     Route: 048
  24. NORVASC [Concomitant]
     Active Substance: AMLODIPINE BESYLATE
     Indication: HYPERTENSION
     Dosage: 5 MG, BID
     Route: 048
  25. SOLIRIS [Suspect]
     Active Substance: ECULIZUMAB
     Indication: HAEMOLYTIC URAEMIC SYNDROME
     Dosage: 900 MG, QW
     Route: 042
     Dates: start: 20141026, end: 20141114
  26. SOLIRIS [Suspect]
     Active Substance: ECULIZUMAB
     Dosage: 1200 MG, Q2W
     Route: 042
     Dates: start: 20141121
  27. LOVENOX [Concomitant]
     Active Substance: ENOXAPARIN SODIUM
     Indication: ANTICOAGULANT THERAPY
     Dosage: 40 MG, DIE
     Route: 058
     Dates: start: 20141028
  28. CALCIUM [Concomitant]
     Active Substance: CALCIUM
     Indication: SUPPLEMENTATION THERAPY
     Dosage: 1000 MG, QD
     Route: 048
     Dates: start: 20141012
  29. PANTOLOC                           /01263204/ [Concomitant]
     Active Substance: PANTOPRAZOLE SODIUM
     Indication: GASTROINTESTINAL DISORDER
     Dosage: 40 MG, BID
     Route: 048
     Dates: start: 20141025
  30. PREDNISONE. [Concomitant]
     Active Substance: PREDNISONE
     Dosage: 15 MG, UNK
     Route: 048
  31. FOLIC ACID. [Concomitant]
     Active Substance: FOLIC ACID
     Indication: VITAMIN SUPPLEMENTATION
     Dosage: 5 MG, QD
     Route: 048
  32. NOVO-TRIMEL DS [Concomitant]
     Indication: PROPHYLAXIS
     Dosage: 160-180 MG, 1 CO. TIW
     Route: 048
  33. LASIX [Concomitant]
     Active Substance: FUROSEMIDE
     Indication: HYPERTENSION
     Dosage: 20 MG, UNK
     Route: 048
  34. METOPROLOL. [Concomitant]
     Active Substance: METOPROLOL
     Dosage: 25 MG, BID
     Route: 048
  35. TYLENOL [Concomitant]
     Active Substance: ACETAMINOPHEN
     Indication: PAIN
     Dosage: 1 G, Q6H, PRN
     Route: 048
  36. PREDNISONE. [Concomitant]
     Active Substance: PREDNISONE
     Indication: PURPURA
     Dosage: 30 MG, DIE
     Route: 048

REACTIONS (2)
  - Hospitalisation [Unknown]
  - Drug dose omission [Unknown]

NARRATIVE: CASE EVENT DATE: 20161007
